FAERS Safety Report 10580091 (Version 1)
Quarter: 2014Q4

REPORT INFORMATION
  Report Type: Spontaneous
  Country: US (occurrence: US)
  Receive Date: 20141112
  Receipt Date: 20141112
  Transmission Date: 20150529
  Serious: Yes (Other)
  Sender: FDA-Public Use
  Company Number: US-ABBVIE-14P-163-1306563-00

PATIENT
  Sex: Male

DRUGS (3)
  1. ANDROGEL [Suspect]
     Active Substance: TESTOSTERONE
     Indication: BLOOD TESTOSTERONE DECREASED
     Route: 062
  2. DEPO-TESTOSTERONE [Suspect]
     Active Substance: TESTOSTERONE CYPIONATE
     Indication: BLOOD TESTOSTERONE DECREASED
     Route: 065
  3. TESTOSTERONE CYPIONATE. [Suspect]
     Active Substance: TESTOSTERONE CYPIONATE
     Indication: BLOOD TESTOSTERONE DECREASED
     Route: 065

REACTIONS (9)
  - Economic problem [Unknown]
  - Deep vein thrombosis [Unknown]
  - Emotional distress [Unknown]
  - Injury [Unknown]
  - Emotional disorder [Unknown]
  - Cerebrovascular accident [Unknown]
  - Pain [Unknown]
  - Physical disability [Unknown]
  - Tension [Unknown]

NARRATIVE: CASE EVENT DATE: 201111
